FAERS Safety Report 5298856-6 (Version None)
Quarter: 2007Q2

REPORT INFORMATION
  Report Type: 
  Country: None (occurrence: None)
  Receive Date: 20070417
  Receipt Date: 20070405
  Transmission Date: 20071010
  Serious: Yes (Life-Threatening, Hospitalization, Other)
  Sender: FDA-Public Use
  Company Number: BE-NOVOPROD-262323

PATIENT
  Age: 50 Year
  Sex: Female

DRUGS (1)
  1. ACTRAPID [Suspect]
     Indication: OFF LABEL USE
     Dosage: 1100 U, UNK
     Route: 058
     Dates: start: 20070327, end: 20070327

REACTIONS (2)
  - HYPOGLYCAEMIA [None]
  - SUICIDE ATTEMPT [None]
